FAERS Safety Report 5937741-0 (Version None)
Quarter: 2008Q4

REPORT INFORMATION
  Report Type: 
  Country: None (occurrence: None)
  Receive Date: 20081031
  Receipt Date: 20081020
  Transmission Date: 20090506
  Serious: Yes (Death)
  Sender: FDA-Public Use
  Company Number: US-GENENTECH-268711

PATIENT
  Sex: Female
  Weight: 69.5 kg

DRUGS (7)
  1. OMALIZUMAB [Suspect]
     Indication: ASTHMA
     Dosage: 375 MG, Q2W
     Route: 058
     Dates: start: 20050803
  2. BUDESONIDE [Concomitant]
     Indication: ASTHMA
  3. BUDESONIDE [Concomitant]
     Indication: HYPERSENSITIVITY
  4. ALBUTEROL [Concomitant]
     Indication: ASTHMA
  5. ALBUTEROL [Concomitant]
     Indication: HYPERSENSITIVITY
  6. TACROLIMUS [Concomitant]
     Indication: ASTHMA
  7. TACROLIMUS [Concomitant]
     Indication: HYPERSENSITIVITY

REACTIONS (1)
  - METASTATIC NEOPLASM [None]
